FAERS Safety Report 17629661 (Version 7)
Quarter: 2021Q2

REPORT INFORMATION
  Report Type: Spontaneous
  Country: US (occurrence: US)
  Receive Date: 20200406
  Receipt Date: 20210412
  Transmission Date: 20210716
  Serious: No
  Sender: FDA-Public Use
  Company Number: US-PFIZER INC-2020138922

PATIENT
  Age: 84 Year
  Sex: Female
  Weight: 57 kg

DRUGS (3)
  1. METHOTREXATE. [Concomitant]
     Active Substance: METHOTREXATE
     Dosage: UNK
  2. FOLIC ACID. [Concomitant]
     Active Substance: FOLIC ACID
     Dosage: UNK
  3. XELJANZ XR [Suspect]
     Active Substance: TOFACITINIB CITRATE
     Indication: ARTHRITIS
     Dosage: 11 MG, DAILY
     Route: 048

REACTIONS (10)
  - Acne [Unknown]
  - Glossodynia [Unknown]
  - Pain in extremity [Unknown]
  - Tremor [Unknown]
  - Eye disorder [Unknown]
  - Pruritus [Unknown]
  - Hypoacusis [Unknown]
  - Oral pain [Unknown]
  - Mental disorder [Unknown]
  - Arthralgia [Unknown]
